FAERS Safety Report 10174215 (Version 1)
Quarter: 2014Q2

REPORT INFORMATION
  Report Type: Spontaneous
  Country: US (occurrence: US)
  Receive Date: 20140515
  Receipt Date: 20140515
  Transmission Date: 20141212
  Serious: Yes (Other)
  Sender: FDA-Public Use
  Company Number: US-ACTAVIS-2014-09832

PATIENT
  Age: 56 Year
  Sex: Female

DRUGS (1)
  1. HYDROCHLOROTHIAZIDE (WATSON LABORATORIES) [Suspect]
     Indication: HYPERCALCIURIA
     Dosage: 12.5 MG, DAILY
     Route: 065

REACTIONS (1)
  - Mycosis fungoides stage I [Recovering/Resolving]
